FAERS Safety Report 25137184 (Version 1)
Quarter: 2025Q1

REPORT INFORMATION
  Report Type: Spontaneous
  Country: US (occurrence: US)
  Receive Date: 20250329
  Receipt Date: 20250329
  Transmission Date: 20250409
  Serious: Yes (Hospitalization, Other)
  Sender: GRAVITI PHARMACEUTICALS PRIVATE LIMITED
  Company Number: US-GRAVITIPHARMA-GRA-2503-US-LIT-0148

PATIENT
  Age: 25 Year
  Sex: Female

DRUGS (3)
  1. BUPROPION [Suspect]
     Active Substance: BUPROPION
     Indication: Product used for unknown indication
     Route: 065
  2. TRAZODONE [Suspect]
     Active Substance: TRAZODONE HYDROCHLORIDE
     Indication: Product used for unknown indication
     Route: 065
  3. SERTRALINE [Concomitant]
     Active Substance: SERTRALINE HYDROCHLORIDE
     Indication: Product used for unknown indication
     Route: 065

REACTIONS (13)
  - Sinus tachycardia [Recovering/Resolving]
  - Apnoea [Recovering/Resolving]
  - Hypotension [Recovering/Resolving]
  - Coma [Recovering/Resolving]
  - Mental status changes [Recovering/Resolving]
  - Areflexia [Recovering/Resolving]
  - Respiratory acidosis [Recovering/Resolving]
  - Seizure [Recovering/Resolving]
  - Respiratory depression [Recovering/Resolving]
  - Unresponsive to stimuli [Recovering/Resolving]
  - Intentional overdose [Unknown]
  - Treatment noncompliance [Unknown]
  - Toxicity to various agents [Unknown]
